FAERS Safety Report 17464356 (Version 2)
Quarter: 2020Q1

REPORT INFORMATION
  Report Type: Spontaneous
  Country: US (occurrence: US)
  Receive Date: 20200226
  Receipt Date: 20200311
  Transmission Date: 20200409
  Serious: No
  Sender: FDA-Public Use
  Company Number: US-ACORDA-ACO_163949_2020

PATIENT
  Sex: Female

DRUGS (3)
  1. DALFAMPRIDINE. [Suspect]
     Active Substance: DALFAMPRIDINE
     Indication: MULTIPLE SCLEROSIS
     Dosage: 10 MILLIGRAM, BID
     Route: 048
     Dates: start: 2019, end: 2019
  2. AMPYRA [Suspect]
     Active Substance: DALFAMPRIDINE
     Indication: GAIT DISTURBANCE
     Dosage: UNK
     Dates: start: 2019
  3. AMPYRA [Suspect]
     Active Substance: DALFAMPRIDINE
     Indication: MULTIPLE SCLEROSIS
     Dosage: 10 MILLIGRAM, BID
     Route: 048
     Dates: start: 20110903, end: 2019

REACTIONS (6)
  - Fall [Recovering/Resolving]
  - Feeling abnormal [Recovering/Resolving]
  - Nausea [Recovering/Resolving]
  - Insomnia [Recovering/Resolving]
  - Impaired driving ability [Recovering/Resolving]
  - Carpal tunnel syndrome [Recovering/Resolving]

NARRATIVE: CASE EVENT DATE: 2019
